FAERS Safety Report 8934161 (Version 1)
Quarter: 2012Q4

REPORT INFORMATION
  Report Type: 
  Country: US (occurrence: US)
  Receive Date: 20121129
  Receipt Date: 20121129
  Transmission Date: 20130627
  Serious: No
  Sender: FDA-Public Use
  Company Number: US-GLAXOSMITHKLINE-A0983227A

PATIENT
  Sex: Male

DRUGS (5)
  1. WELLBUTRIN [Suspect]
     Indication: DEPRESSION
     Dosage: 150MG Twice per day
     Dates: start: 2010
  2. BUPROPION HCL [Suspect]
     Indication: DEPRESSION
     Route: 048
  3. RESTORIL [Concomitant]
  4. PRILOSEC [Concomitant]
  5. ANTACIN [Concomitant]

REACTIONS (4)
  - Libido increased [Unknown]
  - Weight control [Unknown]
  - Decreased appetite [Unknown]
  - Therapeutic response unexpected [Unknown]
